FAERS Safety Report 4595357-5 (Version None)
Quarter: 2005Q1

REPORT INFORMATION
  Report Type: 
  Country: None (occurrence: None)
  Receive Date: 20050223
  Receipt Date: 20050208
  Transmission Date: 20050727
  Serious: Yes (Life-Threatening, Hospitalization)
  Sender: FDA-Public Use
  Company Number: 2004CG02442

PATIENT
  Age: 72 Year
  Sex: Male
  Weight: 65 kg

DRUGS (13)
  1. NAROPIN [Suspect]
     Indication: LOCAL ANAESTHESIA
     Dates: start: 20041104, end: 20041104
  2. NAROPIN [Suspect]
     Indication: POSTOPERATIVE ANALGESIA
     Dates: start: 20041104, end: 20041104
  3. NAROPIN [Suspect]
     Indication: LOCAL ANAESTHESIA
     Dosage: 10 ML /HR ED
     Route: 008
     Dates: start: 20041104, end: 20041105
  4. NAROPIN [Suspect]
     Indication: POSTOPERATIVE ANALGESIA
     Dosage: 10 ML /HR ED
     Route: 008
     Dates: start: 20041104, end: 20041105
  5. MORPHINE [Concomitant]
  6. FORTUM [Concomitant]
  7. COKENZEN [Concomitant]
  8. SECTRAL [Concomitant]
  9. AMLOR [Concomitant]
  10. DURAGESIC-100 [Concomitant]
  11. SKENAN [Concomitant]
  12. ULTIVA [Concomitant]
  13. HEPARIN [Concomitant]

REACTIONS (20)
  - ACUTE PULMONARY OEDEMA [None]
  - ANAESTHETIC COMPLICATION [None]
  - BLOOD PH INCREASED [None]
  - BLOOD PRESSURE SYSTOLIC INCREASED [None]
  - BRAIN NATRIURETIC PEPTIDE INCREASED [None]
  - CIRCULATORY COLLAPSE [None]
  - EJECTION FRACTION DECREASED [None]
  - ELECTROCARDIOGRAM QT PROLONGED [None]
  - ELECTROCARDIOGRAM REPOLARISATION ABNORMALITY [None]
  - GLASGOW COMA SCALE ABNORMAL [None]
  - HEPATOMEGALY [None]
  - PARAPLEGIA [None]
  - PCO2 DECREASED [None]
  - PO2 DECREASED [None]
  - PO2 INCREASED [None]
  - PROCEDURAL COMPLICATION [None]
  - RALES [None]
  - SCIATIC NERVE PALSY [None]
  - TROPONIN INCREASED [None]
  - VENTRICULAR HYPOKINESIA [None]
